FAERS Safety Report 20381286 (Version 1)
Quarter: 2022Q1

REPORT INFORMATION
  Report Type: Spontaneous
  Country: PT (occurrence: PT)
  Receive Date: 20220127
  Receipt Date: 20220127
  Transmission Date: 20220423
  Serious: Yes (Hospitalization, Other)
  Sender: FDA-Public Use
  Company Number: PT-LUPIN PHARMACEUTICALS INC.-2022-00929

PATIENT
  Age: 6 Year
  Sex: Female

DRUGS (1)
  1. CEFTRIAXONE [Suspect]
     Active Substance: CEFTRIAXONE
     Indication: Bacteraemia
     Dosage: 77 MILLIGRAM/KILOGRAM, QD (EMPIRICAL TREATMENT; 2G)
     Route: 065

REACTIONS (3)
  - Cholecystitis acute [Recovered/Resolved]
  - Pseudocholelithiasis [Recovered/Resolved]
  - Drug ineffective [Unknown]
